FAERS Safety Report 9711288 (Version 2)
Quarter: 2013Q4

REPORT INFORMATION
  Report Type: Spontaneous
  Country: US (occurrence: US)
  Receive Date: 20131126
  Receipt Date: 20131126
  Transmission Date: 20140711
  Serious: No
  Sender: FDA-Public Use
  Company Number: US-BRISTOL-MYERS SQUIBB COMPANY-19056795

PATIENT
  Age: 61 Year
  Sex: Female
  Weight: 94.78 kg

DRUGS (4)
  1. BYDUREON [Suspect]
     Indication: TYPE 2 DIABETES MELLITUS
     Route: 058
  2. GLUCOPHAGE [Suspect]
  3. AMARYL [Suspect]
  4. LANTUS [Suspect]
     Dosage: 32 UNITS EVERY NIGHT

REACTIONS (2)
  - Injection site mass [Unknown]
  - Blood glucose fluctuation [Recovering/Resolving]
